FAERS Safety Report 12639032 (Version 1)
Quarter: 2016Q3

REPORT INFORMATION
  Report Type: Report from Study
  Country: US (occurrence: US)
  Receive Date: 20160809
  Receipt Date: 20160809
  Transmission Date: 20161109
  Serious: No
  Sender: FDA-Public Use
  Company Number: GXBR2016US002352

PATIENT
  Age: 55 Year
  Sex: Female

DRUGS (6)
  1. ESTROGEN NOS [Suspect]
     Active Substance: ESTROGENS
     Indication: PRODUCT USED FOR UNKNOWN INDICATION
     Dosage: UNK DF, UNK
     Route: 065
  2. CLONAZEPAM. [Concomitant]
     Active Substance: CLONAZEPAM
     Dosage: UNK DF, UNK
  3. TESTOSTERONE CYPIONATE INJECTABLE [Suspect]
     Active Substance: TESTOSTERONE CYPIONATE
     Indication: DEPRESSION
     Dosage: UNK DF, UNK
     Route: 065
  4. PROGESTERONE. [Suspect]
     Active Substance: PROGESTERONE
     Indication: PRODUCT USED FOR UNKNOWN INDICATION
     Dosage: UNK DF, UNK
     Route: 065
  5. PROZAC [Concomitant]
     Active Substance: FLUOXETINE HYDROCHLORIDE
     Dosage: UNK DF, UNK
  6. OMNITROPE [Suspect]
     Active Substance: SOMATROPIN
     Indication: SHOULDER OPERATION
     Dosage: 0.8 U, 5 DAYS A WEEK
     Route: 065
     Dates: start: 201605, end: 20160716

REACTIONS (5)
  - Off label use [Unknown]
  - Depressed mood [Unknown]
  - Therapeutic response unexpected [Unknown]
  - Joint swelling [Not Recovered/Not Resolved]
  - Arthralgia [Not Recovered/Not Resolved]

NARRATIVE: CASE EVENT DATE: 201605
